FAERS Safety Report 4457574-4 (Version None)
Quarter: 2004Q3

REPORT INFORMATION
  Report Type: 
  Country: None (occurrence: None)
  Receive Date: 20040922
  Receipt Date: 20040915
  Transmission Date: 20050211
  Serious: Yes (Life-Threatening)
  Sender: FDA-Public Use
  Company Number: TCI2004A02811

PATIENT
  Age: 75 Year
  Sex: Male

DRUGS (7)
  1. LANSOPRAZOLE [Suspect]
     Indication: REFLUX OESOPHAGITIS
     Dosage: 30 MG (30 MG, 1 IN 1 D) PER ORAL
     Route: 048
     Dates: start: 20040709, end: 20040710
  2. LANIRAPID (METILDIGOXIN) [Concomitant]
  3. DIART (AZOSEMIDE) [Concomitant]
  4. ALDACTONE [Concomitant]
  5. WARFARIN                         (WARFARIN) [Concomitant]
  6. ASPIRIN [Concomitant]
  7. PROTECADIN         (LAFUTIDINE) [Concomitant]

REACTIONS (5)
  - ALANINE AMINOTRANSFERASE INCREASED [None]
  - ASPARTATE AMINOTRANSFERASE INCREASED [None]
  - CARDIAC FAILURE CHRONIC [None]
  - CONDITION AGGRAVATED [None]
  - HEPATIC FUNCTION ABNORMAL [None]
